FAERS Safety Report 20379050 (Version 2)
Quarter: 2022Q1

REPORT INFORMATION
  Report Type: Report from Study
  Country: US (occurrence: US)
  Receive Date: 20220126
  Receipt Date: 20220317
  Transmission Date: 20220423
  Serious: No
  Sender: FDA-Public Use
  Company Number: US-Ipsen Biopharmaceuticals, Inc.-2022-01533

PATIENT
  Sex: Female

DRUGS (1)
  1. SOMATULINE DEPOT [Suspect]
     Active Substance: LANREOTIDE ACETATE
     Indication: Carcinoid tumour
     Dosage: 120MG/0.5ML EVERY 4 WEEKS
     Route: 058
     Dates: start: 201911

REACTIONS (5)
  - Blood glucose fluctuation [Not Recovered/Not Resolved]
  - Blood cholesterol increased [Recovering/Resolving]
  - Blood chromogranin A [Recovering/Resolving]
  - Injection site nodule [Recovered/Resolved]
  - Injection site pain [Recovering/Resolving]
